FAERS Safety Report 10295070 (Version 8)
Quarter: 2016Q2

REPORT INFORMATION
  Report Type: Spontaneous
  Country: US (occurrence: US)
  Receive Date: 20140710
  Receipt Date: 20160405
  Transmission Date: 20160815
  Serious: Yes (Hospitalization, Other)
  Sender: FDA-Public Use
  Company Number: US-009507513-1407USA001660

PATIENT
  Sex: Male
  Weight: 78.5 kg

DRUGS (7)
  1. FINASTERIDE. [Suspect]
     Active Substance: FINASTERIDE
     Indication: ALOPECIA
     Dosage: 5 MG, QD
     Route: 048
     Dates: start: 20060815, end: 200708
  2. FINASTERIDE. [Suspect]
     Active Substance: FINASTERIDE
     Dosage: 5 MG, QD
     Route: 048
     Dates: start: 20071017, end: 2011
  3. FINASTERIDE. [Suspect]
     Active Substance: FINASTERIDE
     Indication: ALOPECIA
     Dosage: 5 MG, QD
     Route: 048
     Dates: start: 20070809, end: 200710
  4. FINASTERIDE. [Suspect]
     Active Substance: FINASTERIDE
     Indication: ALOPECIA
     Dosage: 5 MG, QD
     Route: 048
     Dates: start: 20111126, end: 20140114
  5. DIURETIC (UNSPECIFIED) [Concomitant]
     Active Substance: UNSPECIFIED INGREDIENT
     Dosage: UNK
     Dates: start: 20050107, end: 20100618
  6. PROSCAR [Suspect]
     Active Substance: FINASTERIDE
     Indication: BENIGN PROSTATIC HYPERPLASIA
     Dosage: 5 MG, QD
     Route: 048
     Dates: start: 20020702, end: 200608
  7. PROSCAR [Suspect]
     Active Substance: FINASTERIDE
     Indication: ALOPECIA
     Dosage: 5 MG, QD
     Route: 048
     Dates: end: 201406

REACTIONS (25)
  - Prostate cancer recurrent [Not Recovered/Not Resolved]
  - Diabetes mellitus [Not Recovered/Not Resolved]
  - Coronary artery disease [Unknown]
  - Chronic obstructive pulmonary disease [Not Recovered/Not Resolved]
  - Exostosis [Unknown]
  - Carotid artery stenosis [Unknown]
  - Sexual dysfunction [Not Recovered/Not Resolved]
  - Erectile dysfunction [Not Recovered/Not Resolved]
  - Cerebrovascular accident [Unknown]
  - Spinal osteoarthritis [Unknown]
  - Chronic obstructive pulmonary disease [Not Recovered/Not Resolved]
  - Loss of libido [Not Recovered/Not Resolved]
  - Aortic stenosis [Unknown]
  - Prostate cancer stage II [Not Recovered/Not Resolved]
  - Dyspnoea [Unknown]
  - Benign prostatic hyperplasia [Unknown]
  - Peripheral vascular disorder [Unknown]
  - Coronary arterial stent insertion [Unknown]
  - Intentional product misuse [Unknown]
  - Transient ischaemic attack [Unknown]
  - Hyperlipidaemia [Not Recovered/Not Resolved]
  - Hypertension [Unknown]
  - Coccidioidomycosis [Unknown]
  - Hepatitis A [Unknown]
  - Glaucoma [Unknown]

NARRATIVE: CASE EVENT DATE: 20020702
